FAERS Safety Report 24049326 (Version 1)
Quarter: 2024Q3

REPORT INFORMATION
  Report Type: Spontaneous
  Country: CA (occurrence: CA)
  Receive Date: 20240704
  Receipt Date: 20240704
  Transmission Date: 20241017
  Serious: Yes (Other)
  Sender: GLAXOSMITHKLINE
  Company Number: CA-GLAXOSMITHKLINE-CA2024AMR075314

PATIENT
  Age: 62 Year
  Sex: Female

DRUGS (4)
  1. ALBUTEROL [Suspect]
     Active Substance: ALBUTEROL
     Indication: Product used for unknown indication
     Dosage: UNK
     Route: 065
  2. NUCALA [Suspect]
     Active Substance: MEPOLIZUMAB
     Indication: Asthma
     Dosage: 100 MG, MO, 1 EVERY 1 MONTHS
     Route: 042
  3. ALVESCO [Suspect]
     Active Substance: CICLESONIDE
     Indication: Product used for unknown indication
     Dosage: 2 DF, BID, 2 EVERY 1 DAYS
     Route: 055
  4. SYMBICORT [Suspect]
     Active Substance: BUDESONIDE\FORMOTEROL FUMARATE DIHYDRATE
     Indication: Product used for unknown indication
     Dosage: 2 DF, TID, 3 EVERY 1 DAYS, POWDER
     Route: 055

REACTIONS (7)
  - Asthma [Recovering/Resolving]
  - Dyspnoea [Recovering/Resolving]
  - Full blood count abnormal [Recovering/Resolving]
  - Loss of personal independence in daily activities [Recovering/Resolving]
  - Sleep disorder due to a general medical condition [Recovering/Resolving]
  - Wheezing [Recovering/Resolving]
  - Therapeutic product effect incomplete [Recovering/Resolving]
